FAERS Safety Report 9641191 (Version 4)
Quarter: 2013Q4

REPORT INFORMATION
  Report Type: Spontaneous
  Country: JP (occurrence: JP)
  Receive Date: 20131023
  Receipt Date: 20131122
  Transmission Date: 20140711
  Serious: Yes (Life-Threatening, Hospitalization)
  Sender: FDA-Public Use
  Company Number: JP-B.I. PHARMACEUTICALS,INC./RIDGEFIELD-2013-BI-33720NB

PATIENT
  Age: 83 Year
  Sex: Female
  Weight: 47.5 kg

DRUGS (5)
  1. PRAZAXA [Suspect]
     Indication: ATRIAL FIBRILLATION
     Dosage: 220 MG
     Route: 048
     Dates: start: 20131004, end: 20131021
  2. GENINAX [Suspect]
     Indication: PYREXIA
     Dosage: 400 MG
     Route: 048
     Dates: start: 20131010, end: 20131017
  3. CELECOX [Suspect]
     Indication: PAIN
     Dosage: 200 MG
     Route: 048
     Dates: start: 20130927, end: 20131021
  4. FLOMOX [Suspect]
     Indication: PYREXIA
     Dosage: 300 MG
     Route: 048
     Dates: start: 20131005, end: 20131009
  5. MUCOSOLVAN / AMBROXOL HYDROCHLORIDE [Concomitant]
     Dosage: 45 MG
     Route: 048
     Dates: start: 20131018, end: 20131021

REACTIONS (1)
  - Eosinophilic pneumonia [Not Recovered/Not Resolved]
